FAERS Safety Report 13348857 (Version 1)
Quarter: 2017Q1

REPORT INFORMATION
  Report Type: Spontaneous
  Country: US (occurrence: US)
  Receive Date: 20170320
  Receipt Date: 20170320
  Transmission Date: 20170428
  Serious: No
  Sender: FDA-Public Use
  Company Number: US-TEVA-740550USA

PATIENT
  Sex: Male

DRUGS (1)
  1. ESCITALOPRAM [Suspect]
     Active Substance: ESCITALOPRAM OXALATE
     Indication: DEPRESSION
     Route: 065
     Dates: start: 201502

REACTIONS (6)
  - Drug ineffective [Unknown]
  - Depression [Unknown]
  - Mood swings [Unknown]
  - Decreased appetite [Unknown]
  - Feeling abnormal [Unknown]
  - Confusional state [Unknown]
